FAERS Safety Report 21998737 (Version 1)
Quarter: 2023Q1

REPORT INFORMATION
  Report Type: Spontaneous
  Country: GB (occurrence: GB)
  Receive Date: 20230216
  Receipt Date: 20230216
  Transmission Date: 20230418
  Serious: Yes (Other)
  Sender: FDA-Public Use
  Company Number: None

PATIENT
  Sex: Female

DRUGS (11)
  1. OMEPRAZOLE [Suspect]
     Active Substance: OMEPRAZOLE
     Dosage: NA
     Route: 048
  2. TAGRISSO [Suspect]
     Active Substance: OSIMERTINIB
     Indication: Lung adenocarcinoma
     Dosage: 245
     Route: 048
  3. AMITRIPTYLINE [Concomitant]
     Active Substance: AMITRIPTYLINE
  4. BISACODYL [Concomitant]
     Active Substance: BISACODYL
     Dosage: NA
  5. CLONAZEPAM [Concomitant]
     Active Substance: CLONAZEPAM
     Dosage: NA
  6. COCODAMOL [Concomitant]
     Active Substance: ACETAMINOPHEN\CODEINE PHOSPHATE
     Dosage: NA
  7. LAMOTRIGINE [Concomitant]
     Active Substance: LAMOTRIGINE
  8. LANSOPRAZOLE [Concomitant]
     Active Substance: LANSOPRAZOLE
  9. METFORMIN [Concomitant]
     Active Substance: METFORMIN HYDROCHLORIDE
     Dosage: NA
  10. PHENYTOIN [Concomitant]
     Active Substance: PHENYTOIN
     Dosage: NA
  11. TAPENTADOL [Concomitant]
     Active Substance: TAPENTADOL
     Dosage: NA

REACTIONS (2)
  - Malignant neoplasm progression [Unknown]
  - Blood alkaline phosphatase abnormal [Unknown]
